FAERS Safety Report 24123999 (Version 1)
Quarter: 2024Q3

REPORT INFORMATION
  Report Type: Spontaneous
  Country: US (occurrence: US)
  Receive Date: 20240723
  Receipt Date: 20240723
  Transmission Date: 20241017
  Serious: No
  Sender: OTSUKA
  Company Number: US-OTSUKA-2024_019159

PATIENT
  Sex: Female

DRUGS (3)
  1. REXULTI [Suspect]
     Active Substance: BREXPIPRAZOLE
     Indication: Persistent depressive disorder
     Dosage: UNK
     Route: 065
  2. REXULTI [Suspect]
     Active Substance: BREXPIPRAZOLE
     Indication: Frontotemporal dementia
  3. REXULTI [Suspect]
     Active Substance: BREXPIPRAZOLE
     Indication: Executive dysfunction

REACTIONS (2)
  - Product packaging quantity issue [Unknown]
  - Product use in unapproved indication [Unknown]
